FAERS Safety Report 5205371-4 (Version None)
Quarter: 2007Q1

REPORT INFORMATION
  Report Type: 
  Country: None (occurrence: None)
  Receive Date: 20070110
  Receipt Date: 20070105
  Transmission Date: 20070707
  Serious: Yes (Life-Threatening, Hospitalization)
  Sender: FDA-Public Use
  Company Number: US-MERCK-0701USA00801

PATIENT
  Age: 47 Year
  Sex: Female

DRUGS (7)
  1. FOSAMAX [Suspect]
     Indication: OSTEOPOROSIS
     Route: 048
     Dates: end: 20061101
  2. LAMICTAL [Concomitant]
     Route: 065
     Dates: start: 20061001, end: 20061101
  3. CLOZARIL [Concomitant]
     Route: 065
  4. PROVIGIL [Concomitant]
     Route: 065
  5. LEXAPRO [Concomitant]
     Route: 065
  6. XANAX [Concomitant]
     Route: 065
  7. RISPERDAL [Concomitant]
     Route: 065

REACTIONS (2)
  - ANAEMIA [None]
  - RENAL DISORDER [None]
